FAERS Safety Report 17584398 (Version 5)
Quarter: 2021Q2

REPORT INFORMATION
  Report Type: Spontaneous
  Country: US (occurrence: US)
  Receive Date: 20200326
  Receipt Date: 20210512
  Transmission Date: 20210716
  Serious: Yes (Other)
  Sender: FDA-Public Use
  Company Number: US-PFIZER INC-2020124732

PATIENT
  Age: 73 Year
  Sex: Male

DRUGS (1)
  1. TOVIAZ [Suspect]
     Active Substance: FESOTERODINE FUMARATE
     Dosage: UNK (STRENGTH: 8 MG/ QUANTITY FOR 90 DAYS: 90)

REACTIONS (2)
  - Seizure [Unknown]
  - Incontinence [Unknown]
